FAERS Safety Report 8791087 (Version 1)
Quarter: 2012Q4

REPORT INFORMATION
  Report Type: Spontaneous
  Country: PK (occurrence: None)
  Receive Date: 20120911
  Receipt Date: 20120911
  Transmission Date: 20130627
  Serious: Yes (Death)
  Sender: FDA-Public Use
  Company Number: JP-2012-16160

PATIENT
  Age: 47 Year
  Sex: Female

DRUGS (1)
  1. PLETAAL [Suspect]
     Indication: DIABETIC FOOT
     Route: 048

REACTIONS (1)
  - Acute myocardial infarction [None]
